FAERS Safety Report 7243556-6 (Version None)
Quarter: 2011Q1

REPORT INFORMATION
  Report Type: 
  Country: None (occurrence: None)
  Receive Date: 20110125
  Receipt Date: 20110113
  Transmission Date: 20110831
  Serious: Yes (Congenital Anomaly)
  Sender: FDA-Public Use
  Company Number: US-GILEAD-2011-0035396

PATIENT

DRUGS (5)
  1. COMBIVIR [Concomitant]
     Indication: HIV INFECTION
     Route: 064
     Dates: start: 20100727, end: 20101020
  2. NORVIR [Concomitant]
     Indication: HIV INFECTION
     Route: 064
     Dates: start: 20101021
  3. TRUVADA [Suspect]
     Indication: HIV INFECTION
     Route: 064
     Dates: start: 20101021
  4. KALETRA [Concomitant]
     Indication: HIV INFECTION
     Route: 064
     Dates: start: 20100727, end: 20101020
  5. REYATAZ [Concomitant]
     Indication: HIV INFECTION
     Route: 064
     Dates: start: 20101021

REACTIONS (1)
  - ULTRASOUND ANTENATAL SCREEN ABNORMAL [None]
